FAERS Safety Report 6255447-8 (Version None)
Quarter: 2009Q3

REPORT INFORMATION
  Report Type: 
  Country: None (occurrence: None)
  Receive Date: 20090702
  Receipt Date: 20090629
  Transmission Date: 20100115
  Serious: Yes (Other)
  Sender: FDA-Public Use
  Company Number: CA-ASTRAZENECA-2009UW18158

PATIENT

DRUGS (1)
  1. XYLOCAINE [Suspect]
     Dosage: PHYSICIAN THOUGHT SHE WAS DRAWING XYLOCAINE W/EPINEPHRINE, BUT THIS HAD NO EPINEPHRINE.
     Route: 042

REACTIONS (1)
  - DRUG LABEL CONFUSION [None]
